FAERS Safety Report 20653096 (Version 9)
Quarter: 2022Q3

REPORT INFORMATION
  Report Type: Spontaneous
  Country: US (occurrence: US)
  Receive Date: 20220330
  Receipt Date: 20220811
  Transmission Date: 20221027
  Serious: Yes (Other)
  Sender: FDA-Public Use
  Company Number: US-GLAXOSMITHKLINE-US2022AMR055620

PATIENT

DRUGS (2)
  1. ZEJULA [Suspect]
     Active Substance: NIRAPARIB
     Indication: Malignant peritoneal neoplasm
     Dosage: 200 MG, QD
     Dates: start: 20220318
  2. ZEJULA [Suspect]
     Active Substance: NIRAPARIB
     Dosage: 200 MG, BID

REACTIONS (36)
  - Neuropathy peripheral [Not Recovered/Not Resolved]
  - Feeling abnormal [Unknown]
  - Fatigue [Not Recovered/Not Resolved]
  - Constipation [Unknown]
  - Nausea [Not Recovered/Not Resolved]
  - Hypoaesthesia [Unknown]
  - Peripheral swelling [Unknown]
  - Pain in extremity [Unknown]
  - Arthralgia [Unknown]
  - Laboratory test abnormal [Recovering/Resolving]
  - Condition aggravated [Unknown]
  - Blood glucose increased [Not Recovered/Not Resolved]
  - Flatulence [Unknown]
  - Abdominal pain upper [Unknown]
  - Asthenia [Unknown]
  - Memory impairment [Unknown]
  - Cognitive disorder [Unknown]
  - Crying [Unknown]
  - Dyspnoea [Unknown]
  - White blood cell count decreased [Unknown]
  - Red blood cell count decreased [Recovered/Resolved]
  - Haemoglobin decreased [Unknown]
  - Haematocrit decreased [Unknown]
  - Chromaturia [Unknown]
  - Dry mouth [Unknown]
  - Dry throat [Unknown]
  - Nasal congestion [Unknown]
  - Full blood count abnormal [Unknown]
  - Dermatitis contact [Unknown]
  - Alopecia [Unknown]
  - Haemoglobin abnormal [Unknown]
  - Haematocrit abnormal [Unknown]
  - Diarrhoea [Unknown]
  - Carbohydrate antigen 125 increased [Unknown]
  - Peritoneal disorder [Unknown]
  - Extra dose administered [Unknown]

NARRATIVE: CASE EVENT DATE: 20220301
